FAERS Safety Report 20153793 (Version 2)
Quarter: 2022Q2

REPORT INFORMATION
  Report Type: Spontaneous
  Country: US (occurrence: US)
  Receive Date: 20211207
  Receipt Date: 20220607
  Transmission Date: 20220721
  Serious: Yes (Other)
  Sender: FDA-Public Use
  Company Number: US-NOVARTISPH-NVSC2021US270619

PATIENT
  Sex: Female

DRUGS (1)
  1. COSENTYX [Suspect]
     Active Substance: SECUKINUMAB
     Indication: Product used for unknown indication
     Dosage: UNK
     Route: 065

REACTIONS (13)
  - Autoimmune disorder [Unknown]
  - Condition aggravated [Unknown]
  - Eczema [Unknown]
  - Scar [Unknown]
  - Miliaria [Unknown]
  - Stomatitis [Unknown]
  - Scratch [Unknown]
  - Psoriasis [Unknown]
  - Skin lesion [Unknown]
  - Pruritus [Not Recovered/Not Resolved]
  - Inflammation [Unknown]
  - Skin exfoliation [Unknown]
  - Drug ineffective [Unknown]
